FAERS Safety Report 21963835 (Version 2)
Quarter: 2023Q1

REPORT INFORMATION
  Report Type: Spontaneous
  Country: US (occurrence: US)
  Receive Date: 20230207
  Receipt Date: 20230213
  Transmission Date: 20230418
  Serious: No
  Sender: FDA-Public Use
  Company Number: US-SANOFI-01477268

PATIENT
  Age: 21 Year
  Sex: Female

DRUGS (1)
  1. DUPIXENT [Suspect]
     Active Substance: DUPILUMAB
     Indication: Eczema
     Dosage: 600 MG, 1X
     Route: 065
     Dates: start: 20230203, end: 20230203

REACTIONS (3)
  - Accidental exposure to product [Unknown]
  - Product storage error [Unknown]
  - Product preparation error [Unknown]

NARRATIVE: CASE EVENT DATE: 20230203
